FAERS Safety Report 7225462-6 (Version None)
Quarter: 2011Q1

REPORT INFORMATION
  Report Type: 
  Country: None (occurrence: None)
  Receive Date: 20110113
  Receipt Date: 20110112
  Transmission Date: 20110831
  Serious: Yes (Other)
  Sender: FDA-Public Use
  Company Number: US-PFIZER INC-2010181544

PATIENT
  Age: 57 Year
  Sex: Female

DRUGS (1)
  1. PRISTIQ [Suspect]
     Indication: DEPRESSION
     Dosage: 50 MG, 1X/DAY
     Route: 048
     Dates: start: 20100901

REACTIONS (4)
  - FLATULENCE [None]
  - INCREASED APPETITE [None]
  - WEIGHT INCREASED [None]
  - ALOPECIA [None]
